FAERS Safety Report 17237096 (Version 1)
Quarter: 2020Q1

REPORT INFORMATION
  Report Type: Spontaneous
  Country: US (occurrence: US)
  Receive Date: 20200106
  Receipt Date: 20200106
  Transmission Date: 20200409
  Serious: No
  Sender: FDA-Public Use
  Company Number: US-PFIZER INC-2019563339

PATIENT
  Sex: Male

DRUGS (7)
  1. VITAMIN C [Suspect]
     Active Substance: ASCORBIC ACID
     Dosage: UNK
  2. MAGNESIUM SULFATE. [Suspect]
     Active Substance: MAGNESIUM SULFATE
     Dosage: UNK
  3. CALCIUM+D3 [Suspect]
     Active Substance: CALCIUM\CHOLECALCIFEROL
     Dosage: UNK
  4. FISH OIL [Suspect]
     Active Substance: FISH OIL
     Dosage: UNK
  5. VITAMIN E [Suspect]
     Active Substance: .ALPHA.-TOCOPHEROL
     Dosage: UNK
  6. CENTRUM SILVER ADULTS 50+ [Suspect]
     Active Substance: MINERALS\VITAMINS
     Dosage: 8 DF, 1X/DAY (IN THE MORNINGS HE TAKES 8 PILLS)
  7. VITAMIN A [Suspect]
     Active Substance: VITAMIN A
     Dosage: UNK

REACTIONS (1)
  - Abdominal discomfort [Unknown]
